FAERS Safety Report 9287993 (Version 1)
Quarter: 2013Q2

REPORT INFORMATION
  Report Type: Spontaneous
  Country: US (occurrence: None)
  Receive Date: 20130513
  Receipt Date: 20130513
  Transmission Date: 20140414
  Serious: No
  Sender: FDA-Public Use
  Company Number: None

PATIENT
  Age: 75 Year
  Sex: Male
  Weight: 80 kg

DRUGS (1)
  1. REMICADE [Suspect]
     Indication: RHEUMATOID ARTHRITIS
     Dosage: 300MG IV Q 8WKS
     Route: 042

REACTIONS (5)
  - Pruritus [None]
  - Rash erythematous [None]
  - Dizziness [None]
  - Cold sweat [None]
  - Fatigue [None]
